FAERS Safety Report 8322443-6 (Version None)
Quarter: 2012Q1

REPORT INFORMATION
  Report Type: 
  Country: None (occurrence: None)
  Receive Date: 20120315
  Receipt Date: 20110123
  Transmission Date: 20120608
  Serious: No
  Sender: FDA-Public Use
  Company Number: PHHY2011US02842

PATIENT
  Age: 62 Year
  Sex: Female

DRUGS (6)
  1. PROVIGIL [Concomitant]
  2. GILENYA [Suspect]
     Indication: MULTIPLE SCLEROSIS
     Dosage: 0.5 MG, QD, ORAL
     Route: 048
     Dates: start: 20110112
  3. AMITRIPTYLINE HCL [Concomitant]
  4. TOPAMAX [Concomitant]
  5. DYAZIDE [Concomitant]
  6. FLEXERIL [Concomitant]

REACTIONS (2)
  - DRY MOUTH [None]
  - DIZZINESS POSTURAL [None]
